FAERS Safety Report 9897152 (Version 3)
Quarter: 2014Q3

REPORT INFORMATION
  Report Type: Spontaneous
  Country: US (occurrence: US)
  Receive Date: 20140214
  Receipt Date: 20140825
  Transmission Date: 20150326
  Serious: Yes (Life-Threatening, Other)
  Sender: FDA-Public Use
  Company Number: US-BRISTOL-MYERS SQUIBB COMPANY-20155974

PATIENT
  Age: 72 Year
  Sex: Male
  Weight: 82.99 kg

DRUGS (11)
  1. ZOCOR [Concomitant]
     Active Substance: SIMVASTATIN
     Dosage: TABS
     Route: 048
  2. PROSCAR [Concomitant]
     Active Substance: FINASTERIDE
     Route: 048
     Dates: start: 20140127
  3. ZESTRIL [Concomitant]
     Active Substance: LISINOPRIL
     Dosage: TABS
     Route: 048
     Dates: start: 20140127
  4. UROXATRAL [Concomitant]
     Active Substance: ALFUZOSIN HYDROCHLORIDE
     Dosage: 10 MG TABLETEXTENDED RELEASE,
     Route: 048
  5. ORENCIA [Suspect]
     Active Substance: ABATACEPT
     Indication: RHEUMATOID ARTHRITIS
     Dosage: INITIALLY, 750 Q 2 WEEKS FOR 6 WEEKS, THEN ONCE PER MONTH-MOST RECENT DOSING 02-DEC-2013
     Route: 042
     Dates: start: 20090708
  6. NIASPAN [Concomitant]
     Active Substance: NIACIN
     Dosage: EXTENDED-RELEASE 1,000 MG
     Route: 048
  7. ASPIRIN. [Concomitant]
     Active Substance: ASPIRIN
     Dosage: CAPSULEDELAYED RELEASE
     Route: 048
  8. OMEPRAZOLE. [Concomitant]
     Active Substance: OMEPRAZOLE
     Dosage: CAPS  CAPSULE  DELAYED RELEASE,
     Route: 048
     Dates: start: 20130311, end: 20140305
  9. DICLOFENAC SODIUM. [Concomitant]
     Active Substance: DICLOFENAC SODIUM
     Dosage: DELAYED RELEASE TABS
     Route: 048
     Dates: start: 20130325, end: 201403
  10. HYDROCHLOROTHIAZIDE. [Concomitant]
     Active Substance: HYDROCHLOROTHIAZIDE
     Dosage: TABS
     Route: 048
  11. METHOTREXATE SODIUM INJ [Concomitant]
     Active Substance: METHOTREXATE SODIUM
     Dosage: PF) 25 MG/ML
     Dates: start: 201309

REACTIONS (1)
  - Posterior reversible encephalopathy syndrome [Recovering/Resolving]

NARRATIVE: CASE EVENT DATE: 2014
